FAERS Safety Report 5866288-5 (Version None)
Quarter: 2008Q3

REPORT INFORMATION
  Report Type: 
  Country: None (occurrence: None)
  Receive Date: 20080901
  Receipt Date: 20080825
  Transmission Date: 20090109
  Serious: Yes (Other)
  Sender: FDA-Public Use
  Company Number: JP-SP-2008-02461

PATIENT
  Age: 70 Year
  Sex: Male

DRUGS (10)
  1. IMMUCYST [Suspect]
     Indication: BLADDER CANCER
     Route: 043
     Dates: start: 20080513, end: 20080701
  2. IMMUCYST [Suspect]
     Route: 043
     Dates: start: 20080513, end: 20080701
  3. TS-1 (TEGAFUR ETC.) [Concomitant]
  4. URSODESOXYCHOLIC ACID [Concomitant]
  5. PIOGLITAZONE HCL [Concomitant]
  6. DIMETICONE [Concomitant]
  7. ZOPICLONE [Concomitant]
  8. HOCHU-EKKI TO [Concomitant]
  9. BIFIDOBACTERIUM [Concomitant]
  10. TAMSULOSIN HCL [Concomitant]

REACTIONS (8)
  - CYSTITIS NONINFECTIVE [None]
  - DYSURIA [None]
  - HAEMATURIA [None]
  - POLLAKIURIA [None]
  - PYREXIA [None]
  - PYURIA [None]
  - URGE INCONTINENCE [None]
  - WHITE BLOOD CELLS URINE POSITIVE [None]
